FAERS Safety Report 8322544-2 (Version None)
Quarter: 2012Q2

REPORT INFORMATION
  Report Type: 
  Country: None (occurrence: None)
  Receive Date: 20120430
  Receipt Date: 20100405
  Transmission Date: 20120825
  Serious: No
  Sender: FDA-Public Use
  Company Number: US-TEVA-2010000911

PATIENT
  Sex: Male
  Weight: 97.61 kg

DRUGS (3)
  1. NUVIGIL [Suspect]
     Indication: ATTENTION DEFICIT/HYPERACTIVITY DISORDER
     Dosage: 150 MILLIGRAM;
     Route: 048
     Dates: start: 20100129, end: 20100215
  2. CYMBALTA [Concomitant]
     Dosage: 40 MILLIGRAM;
     Route: 048
     Dates: start: 20091221
  3. NUVIGIL [Suspect]
     Indication: SOMNOLENCE

REACTIONS (1)
  - RASH [None]
